FAERS Safety Report 5866529-4 (Version None)
Quarter: 2008Q3

REPORT INFORMATION
  Report Type: 
  Country: None (occurrence: None)
  Receive Date: 20080902
  Receipt Date: 20080902
  Transmission Date: 20090109
  Serious: Yes (Hospitalization)
  Sender: FDA-Public Use
  Company Number: PHEH1996US00057

PATIENT
  Sex: Male
  Weight: 76.6 kg

DRUGS (6)
  1. NEORAL [Suspect]
     Dosage: UNK
     Route: 048
     Dates: start: 19951025
  2. SOLU-MEDROL [Concomitant]
  3. IMURAN [Concomitant]
  4. ZINACEF [Concomitant]
  5. PREDNISONE TAB [Concomitant]
  6. VANCONYCIN (VANCOMYCIN HYDROCHLORIDE) [Concomitant]

REACTIONS (4)
  - ABSCESS [None]
  - BACTERIAL INFECTION [None]
  - BRONCHOPNEUMONIA [None]
  - SURGERY [None]
